FAERS Safety Report 10067711 (Version 1)
Quarter: 2014Q2

REPORT INFORMATION
  Report Type: Spontaneous
  Country: US (occurrence: None)
  Receive Date: 20140401
  Receipt Date: 20140401
  Transmission Date: 20141212
  Serious: Yes (Other)
  Sender: FDA-Public Use
  Company Number: PHEH2013US010954

PATIENT
  Sex: 0

DRUGS (1)
  1. TASIGNA (AMN107) UNKNOWN [Suspect]

REACTIONS (3)
  - Pancreatitis acute [None]
  - Myalgia [None]
  - Arthralgia [None]
